FAERS Safety Report 4825503-7 (Version None)
Quarter: 2005Q4

REPORT INFORMATION
  Report Type: 
  Country: None (occurrence: None)
  Receive Date: 20051111
  Receipt Date: 20051021
  Transmission Date: 20060501
  Serious: Yes (Hospitalization)
  Sender: FDA-Public Use
  Company Number: BE-ABBOTT-05P-013-0315444-00

PATIENT
  Sex: Male

DRUGS (19)
  1. ZEMPLAR [Suspect]
     Indication: DRUG USE FOR UNKNOWN INDICATION
     Dosage: NOT REPORTED
     Route: 042
     Dates: start: 20050804
  2. Z-MU ERYTHROPOIETINE ALFA [Concomitant]
     Indication: ANAEMIA
     Dates: start: 19960509, end: 20050802
  3. Z-MU ERYTHROPOIETINE ALFA [Concomitant]
     Dates: start: 20050804, end: 20050830
  4. Z-MU ERYTHROPOIETINE ALFA [Concomitant]
     Dosage: TUESDAYS AND SATURDAYS
     Dates: start: 20050830
  5. IRONSACCHAROSE [Concomitant]
     Indication: MINERAL SUPPLEMENTATION
     Dates: start: 19960518, end: 20050906
  6. IRONSACCHAROSE [Concomitant]
     Dates: start: 20051004
  7. ASPIRIN [Concomitant]
     Indication: THROMBOSIS PROPHYLAXIS
     Dates: start: 20050407
  8. HYDROXYZINE DIHYDROCHLORIDE [Concomitant]
     Indication: INSOMNIA
     Dates: start: 19980101
  9. CALCIUM CARBONATE [Concomitant]
     Indication: MINERAL SUPPLEMENTATION
     Dates: start: 19960101
  10. CALCITRIOL [Concomitant]
     Indication: RENAL OSTEODYSTROPHY
     Dates: start: 20041102, end: 20050728
  11. HYDROCORTISONE [Concomitant]
     Indication: PULMONARY ARTERIOVENOUS FISTULA
     Dates: start: 20050728, end: 20050728
  12. AMLODIPINE [Concomitant]
     Indication: HYPERTENSION
     Dates: start: 20030826
  13. LEVOCETIRIZINE DIHYDROCHLORIDE [Concomitant]
     Indication: PRURITUS
     Dates: start: 20031030
  14. NACP 10% [Concomitant]
     Indication: MUSCLE SPASMS
     Dates: start: 20050910, end: 20050910
  15. VALORON N [Concomitant]
     Indication: PAIN IN EXTREMITY
     Dates: start: 20050927, end: 20050927
  16. ACETAMINOPHEN [Concomitant]
     Indication: PAIN IN EXTREMITY
     Dates: start: 20050927, end: 20050927
  17. ACETAMINOPHEN [Concomitant]
     Indication: PROCEDURAL PAIN
     Dates: start: 20051012, end: 20051012
  18. ACETAMINOPHEN [Concomitant]
     Dates: start: 20051011, end: 20051011
  19. MIDAZOLAM [Concomitant]
     Indication: SEDATIVE THERAPY
     Dates: start: 20051010, end: 20051010

REACTIONS (1)
  - PERIPHERAL ISCHAEMIA [None]
